FAERS Safety Report 14988165 (Version 3)
Quarter: 2018Q2

REPORT INFORMATION
  Report Type: Spontaneous
  Country: US (occurrence: US)
  Receive Date: 20180608
  Receipt Date: 20180626
  Transmission Date: 20180711
  Serious: No
  Sender: FDA-Public Use
  Company Number: US-PFIZER INC-2018233436

PATIENT
  Age: 68 Year
  Sex: Female

DRUGS (2)
  1. KERYDIN [Suspect]
     Active Substance: TAVABOROLE
     Indication: PARONYCHIA
     Dosage: UNK, 1X/DAY (APPLIED TO AFFECTED NAIL NIGHTLY)
     Dates: end: 201805
  2. KERYDIN [Suspect]
     Active Substance: TAVABOROLE
     Indication: FOOT DEFORMITY
     Dosage: 5% SOLUTION, 10 ML
     Dates: start: 201708

REACTIONS (6)
  - Skin irritation [Not Recovered/Not Resolved]
  - Skin swelling [Not Recovered/Not Resolved]
  - Skin exfoliation [Not Recovered/Not Resolved]
  - Pruritus [Not Recovered/Not Resolved]
  - Hypersensitivity [Not Recovered/Not Resolved]
  - Onycholysis [Recovered/Resolved]

NARRATIVE: CASE EVENT DATE: 201802
